FAERS Safety Report 4596244-9 (Version None)
Quarter: 2005Q1

REPORT INFORMATION
  Report Type: 
  Country: None (occurrence: None)
  Receive Date: 20050225
  Receipt Date: 20050214
  Transmission Date: 20050727
  Serious: Yes (Hospitalization)
  Sender: FDA-Public Use
  Company Number: 2005AP01168

PATIENT
  Sex: Male

DRUGS (3)
  1. IRESSA [Suspect]
     Indication: NON-SMALL CELL LUNG CANCER
     Dosage: 250 MG DAILY PO
     Route: 048
  2. PREDNISOLONE [Concomitant]
  3. KLARICID [Concomitant]

REACTIONS (1)
  - WHITE BLOOD CELL COUNT DECREASED [None]
